FAERS Safety Report 14938180 (Version 3)
Quarter: 2018Q2

REPORT INFORMATION
  Report Type: Report from Study
  Country: US (occurrence: US)
  Receive Date: 20180525
  Receipt Date: 20180622
  Transmission Date: 20180711
  Serious: Yes (Hospitalization)
  Sender: FDA-Public Use
  Company Number: US-TAIHO ONCOLOGY INC-EU-2018-00527

PATIENT
  Age: 82 Year
  Sex: Female
  Weight: 47.67 kg

DRUGS (6)
  1. ALENDRONATE SODIUM. [Concomitant]
     Active Substance: ALENDRONATE SODIUM
     Dosage: EVERY SUNDAY
  2. LONSURF [Suspect]
     Active Substance: TIPIRACIL HYDROCHLORIDE\TRIFLURIDINE
     Indication: COLON CANCER STAGE IV
     Dosage: CYCLE 4 STARTED ON 16APR2018
     Route: 048
     Dates: start: 20180122
  3. BENZONATATE. [Concomitant]
     Active Substance: BENZONATATE
     Indication: COUGH
     Dosage: NI
  4. CARTIA XT [Concomitant]
     Active Substance: DILTIAZEM HYDROCHLORIDE
     Indication: BLOOD PRESSURE MEASUREMENT
  5. BIOTIN [Concomitant]
     Active Substance: BIOTIN
     Indication: SUPPLEMENTATION THERAPY
     Dosage: NI
  6. FERROUS SULFATE. [Concomitant]
     Active Substance: FERROUS SULFATE
     Dates: end: 20180414

REACTIONS (10)
  - Asthenia [Unknown]
  - Haemoglobin decreased [Unknown]
  - Cough [Not Recovered/Not Resolved]
  - Dysphagia [Unknown]
  - Dyspnoea [Unknown]
  - Gait disturbance [Unknown]
  - Product use complaint [Unknown]
  - Stomatitis [Unknown]
  - Fatigue [Unknown]
  - Body height decreased [Unknown]

NARRATIVE: CASE EVENT DATE: 2018
